FAERS Safety Report 19149244 (Version 1)
Quarter: 2021Q2

REPORT INFORMATION
  Report Type: Spontaneous
  Country: US (occurrence: US)
  Receive Date: 20210416
  Receipt Date: 20210416
  Transmission Date: 20210717
  Serious: Yes (Other)
  Sender: FDA-Public Use
  Company Number: US-PFIZER INC-2021387478

PATIENT
  Age: 60 Year
  Sex: Female

DRUGS (1)
  1. PREMARIN [Suspect]
     Active Substance: ESTROGENS, CONJUGATED
     Dosage: 0.5 MG, 2X/WEEK
     Route: 067

REACTIONS (2)
  - Postmenopausal haemorrhage [Unknown]
  - Endometrial thickening [Unknown]
